FAERS Safety Report 16733846 (Version 2)
Quarter: 2020Q2

REPORT INFORMATION
  Report Type: Spontaneous
  Country: US (occurrence: US)
  Receive Date: 20190823
  Receipt Date: 20200626
  Transmission Date: 20200713
  Serious: No
  Sender: FDA-Public Use
  Company Number: US-TEVA-2019-US-1088992

PATIENT
  Sex: Male
  Weight: 63.56 kg

DRUGS (11)
  1. AUSTEDO [Suspect]
     Active Substance: DEUTETRABENAZINE
     Dosage: 24 MILLIGRAM DAILY;
     Dates: start: 20191008
  2. METOPROLOL SUCC ER [Concomitant]
     Active Substance: METOPROLOL SUCCINATE
     Dosage: 50MG
  3. AUSTEDO [Suspect]
     Active Substance: DEUTETRABENAZINE
     Dosage: 24 MILLIGRAM DAILY;
     Dates: start: 20200301
  4. PAROXETINE. [Concomitant]
     Active Substance: PAROXETINE
     Dosage: 60MG
  5. OLANZAPINE. [Suspect]
     Active Substance: OLANZAPINE
     Route: 065
  6. NORTRIPTYLINE [Concomitant]
     Active Substance: NORTRIPTYLINE
     Dosage: 50 MG
  7. ISOSORBIDE. [Concomitant]
     Active Substance: ISOSORBIDE
     Dosage: 30 MG
  8. AUSTEDO [Suspect]
     Active Substance: DEUTETRABENAZINE
     Dosage: TITRATING PATIENT
     Dates: start: 20190802
  9. ASPIRIN. [Concomitant]
     Active Substance: ASPIRIN
     Dosage: 8 MG
  10. AUSTEDO [Suspect]
     Active Substance: DEUTETRABENAZINE
     Dosage: 12 MILLIGRAM DAILY;
  11. AUSTEDO [Suspect]
     Active Substance: DEUTETRABENAZINE
     Dosage: 36 MILLIGRAM DAILY;
     Dates: start: 20200114

REACTIONS (4)
  - Dyskinesia [Unknown]
  - Fatigue [Recovered/Resolved]
  - Asthenia [Recovered/Resolved]
  - Feeling abnormal [Unknown]
